FAERS Safety Report 12220006 (Version 2)
Quarter: 2016Q2

REPORT INFORMATION
  Report Type: Report from Study
  Country: US (occurrence: US)
  Receive Date: 20160330
  Receipt Date: 20160606
  Transmission Date: 20160815
  Serious: No
  Sender: FDA-Public Use
  Company Number: US-AMGEN-USASL2016036341

PATIENT
  Age: 61 Year
  Sex: Male

DRUGS (2)
  1. STELARA [Concomitant]
     Active Substance: USTEKINUMAB
     Dosage: UNK
     Dates: start: 201508, end: 201510
  2. ENBREL [Suspect]
     Active Substance: ETANERCEPT
     Indication: PSORIASIS
     Dosage: UNK UNK
     Route: 065
     Dates: start: 200907

REACTIONS (2)
  - Thinking abnormal [Unknown]
  - Device issue [Unknown]

NARRATIVE: CASE EVENT DATE: 201603
